FAERS Safety Report 5301075-8 (Version None)
Quarter: 2007Q2

REPORT INFORMATION
  Report Type: 
  Country: None (occurrence: None)
  Receive Date: 20070418
  Receipt Date: 20070405
  Transmission Date: 20071010
  Serious: Yes (Hospitalization)
  Sender: FDA-Public Use
  Company Number: FR-ELI_LILLY_AND_COMPANY-FR200704001882

PATIENT
  Age: 82 Year
  Sex: Female

DRUGS (4)
  1. FORTEO [Suspect]
     Indication: OSTEOPOROSIS
     Dosage: 20 UG, DAILY (1/D)
     Route: 058
     Dates: start: 20051004, end: 20070121
  2. AVLOCARDYL [Concomitant]
     Indication: TACHYARRHYTHMIA
     Dosage: 2 D/F, DAILY (1/D)
     Route: 048
     Dates: start: 19810101
  3. DIOSMIN [Concomitant]
     Indication: LYMPHATIC DISORDER
     Dosage: 1 D/F, DAILY (1/D)
     Route: 048
     Dates: start: 19960101
  4. OROCAL [Concomitant]
     Indication: OSTEOPOROSIS

REACTIONS (4)
  - CERVICAL VERTEBRAL FRACTURE [None]
  - EPISTAXIS [None]
  - FALL [None]
  - HAEMOGLOBIN DECREASED [None]
